FAERS Safety Report 9809079 (Version 4)
Quarter: 2014Q4

REPORT INFORMATION
  Report Type: Report from Study
  Country: US (occurrence: US)
  Receive Date: 20140110
  Receipt Date: 20141125
  Transmission Date: 20150529
  Serious: Yes (Death, Other)
  Sender: FDA-Public Use
  Company Number: US-ALEXION PHARMACEUTICALS INC.-A201304804

PATIENT

DRUGS (1)
  1. SOLIRIS [Suspect]
     Active Substance: ECULIZUMAB
     Indication: HAEMOLYTIC URAEMIC SYNDROME
     Dosage: UNK
     Route: 042
     Dates: end: 201212

REACTIONS (5)
  - Death [Fatal]
  - Pancreatic carcinoma [Unknown]
  - Chromaturia [Unknown]
  - Retroperitoneal cancer [Unknown]
  - Metastasis [Not Recovered/Not Resolved]

NARRATIVE: CASE EVENT DATE: 20141103
